FAERS Safety Report 9820908 (Version 1)
Quarter: 2013Q4

REPORT INFORMATION
  Report Type: Spontaneous
  Country: US (occurrence: None)
  Receive Date: 20131025
  Receipt Date: 20131025
  Transmission Date: 20140711
  Serious: Yes (Other)
  Sender: FDA-Public Use
  Company Number: AP356-00010-SPO-US

PATIENT
  Age: 39 Year
  Sex: Female
  Weight: 76.4 kg

DRUGS (4)
  1. BELVIQ [Suspect]
     Indication: WEIGHT CONTROL
     Dates: start: 20130702, end: 20130702
  2. PANTOPRAZOLE (PANTOPRAZOLE) [Suspect]
     Indication: GASTROOESOPHAGEAL REFLUX DISEASE
     Route: 048
     Dates: start: 20130701, end: 20130703
  3. INHALER FOR DIFFICULTY BREATHING (UNSPECIFIED) OTHER RESPIRATORY SYSTEM PRODUCTS) [Concomitant]
  4. PRO AIR HFA (SALBUTAMOL SULFATE) [Concomitant]

REACTIONS (10)
  - Chest discomfort [None]
  - Dyspnoea [None]
  - Feeling abnormal [None]
  - Pruritus [None]
  - Nausea [None]
  - Dizziness [None]
  - Fatigue [None]
  - Insomnia [None]
  - Headache [None]
  - Abdominal discomfort [None]
